FAERS Safety Report 14098410 (Version 3)
Quarter: 2018Q1

REPORT INFORMATION
  Report Type: Spontaneous
  Country: US (occurrence: US)
  Receive Date: 20171017
  Receipt Date: 20180316
  Transmission Date: 20180508
  Serious: Yes (Hospitalization, Other)
  Sender: FDA-Public Use
  Company Number: US-WEST-WARD PHARMACEUTICALS CORP.-US-H14001-17-03928

PATIENT
  Age: 10 Year
  Sex: Male
  Weight: 37.4 kg

DRUGS (11)
  1. DOXORUBICIN [Suspect]
     Active Substance: DOXORUBICIN
     Indication: B PRECURSOR TYPE ACUTE LEUKAEMIA
     Dates: start: 20170626
  2. VINCRISTINE [Suspect]
     Active Substance: VINCRISTINE
     Indication: B PRECURSOR TYPE ACUTE LEUKAEMIA
     Route: 042
     Dates: start: 20170626
  3. DEXAMETHASONE. [Suspect]
     Active Substance: DEXAMETHASONE
     Indication: B PRECURSOR TYPE ACUTE LEUKAEMIA
     Route: 048
     Dates: start: 20170626
  4. METHOTREXATE. [Suspect]
     Active Substance: METHOTREXATE
     Route: 042
     Dates: start: 20170626
  5. CYTARABINE. [Suspect]
     Active Substance: CYTARABINE
     Dosage: ON DAYS 29-32 AND 36-39
     Route: 058
     Dates: start: 20170814
  6. METHOTREXATE. [Suspect]
     Active Substance: METHOTREXATE
     Indication: B PRECURSOR TYPE ACUTE LEUKAEMIA
     Route: 037
     Dates: start: 20170626
  7. CYCLOPHOSPHAMIDE. [Suspect]
     Active Substance: CYCLOPHOSPHAMIDE
     Indication: B PRECURSOR TYPE ACUTE LEUKAEMIA
     Route: 042
     Dates: start: 20170814
  8. CYTARABINE. [Suspect]
     Active Substance: CYTARABINE
     Indication: B PRECURSOR TYPE ACUTE LEUKAEMIA
     Dosage: ON DAYS 29-32 AND 36-39
     Route: 042
     Dates: start: 20170814
  9. INCB018424 [Suspect]
     Active Substance: RUXOLITINIB
     Indication: B PRECURSOR TYPE ACUTE LEUKAEMIA
     Route: 048
     Dates: start: 20170202
  10. PEGASPARGASE [Suspect]
     Active Substance: PEGASPARGASE
     Indication: B PRECURSOR TYPE ACUTE LEUKAEMIA
     Route: 042
     Dates: start: 20170629
  11. THIOGUANINE [Suspect]
     Active Substance: THIOGUANINE
     Indication: B PRECURSOR TYPE ACUTE LEUKAEMIA
     Dosage: 60-80 MG
     Route: 048
     Dates: start: 20170814

REACTIONS (3)
  - Productive cough [Unknown]
  - Febrile neutropenia [Recovered/Resolved]
  - Rhinovirus infection [Unknown]

NARRATIVE: CASE EVENT DATE: 2017
